FAERS Safety Report 23911516 (Version 1)
Quarter: 2024Q2

REPORT INFORMATION
  Report Type: Spontaneous
  Country: US (occurrence: US)
  Receive Date: 20240528
  Receipt Date: 20240528
  Transmission Date: 20240716
  Serious: Yes (Other)
  Sender: FDA-Public Use
  Company Number: US-BIOGEN-2024BI01266342

PATIENT
  Age: 45 Year
  Sex: Female

DRUGS (1)
  1. ZURZUVAE [Suspect]
     Active Substance: ZURANOLONE
     Indication: Perinatal depression
     Dosage: EVERY EVENING
     Route: 050
     Dates: start: 20240513

REACTIONS (8)
  - Suicidal ideation [Recovered/Resolved]
  - Feeling of despair [Recovered/Resolved]
  - Balance disorder [Unknown]
  - Malaise [Unknown]
  - Depressed mood [Recovered/Resolved]
  - Dizziness [Unknown]
  - Nausea [Unknown]
  - Memory impairment [Unknown]

NARRATIVE: CASE EVENT DATE: 20240501
